FAERS Safety Report 4377025-8 (Version None)
Quarter: 2004Q2

REPORT INFORMATION
  Report Type: 
  Country: None (occurrence: None)
  Receive Date: 20040614
  Receipt Date: 20040518
  Transmission Date: 20050107
  Serious: Yes (Death, Hospitalization, Other)
  Sender: FDA-Public Use
  Company Number: NL-GLAXOSMITHKLINE-B0333358A

PATIENT
  Age: 84 Year
  Sex: Male

DRUGS (6)
  1. DUTASTERIDE [Suspect]
     Indication: BENIGN PROSTATIC HYPERPLASIA
     Route: 048
     Dates: start: 20040504, end: 20040517
  2. TAMSULOSINE [Concomitant]
     Dosage: 400MCG PER DAY
  3. FOSINOPRIL SODIUM [Concomitant]
     Dosage: 2TAB PER DAY
  4. HYDROCORTISONE [Concomitant]
     Dosage: 25MG PER DAY
  5. CALCIUM CARBONATE [Concomitant]
     Dosage: 1TAB PER DAY
  6. CLONAZEPAM [Concomitant]
     Dosage: .5MG PER DAY

REACTIONS (5)
  - ATRIAL FIBRILLATION [None]
  - CEREBROVASCULAR ACCIDENT [None]
  - HEMIPLEGIA [None]
  - INFARCTION [None]
  - MYOCARDIAL INFARCTION [None]
